FAERS Safety Report 5745482-8 (Version None)
Quarter: 2008Q2

REPORT INFORMATION
  Report Type: 
  Country: None (occurrence: None)
  Receive Date: 20080521
  Receipt Date: 20080513
  Transmission Date: 20081010
  Serious: Yes (Death)
  Sender: FDA-Public Use
  Company Number: PHFR2008GB00888

PATIENT
  Age: 57 Year
  Sex: Female
  Weight: 64 kg

DRUGS (2)
  1. ALLOPURINOL [Concomitant]
     Indication: GOUT
     Dosage: 100 MG/DAY
     Route: 048
     Dates: start: 20020530
  2. GLEEVEC [Suspect]
     Indication: CHRONIC MYELOID LEUKAEMIA
     Dosage: 400 MG/DAY
     Route: 048
     Dates: start: 20040115

REACTIONS (9)
  - ARM AMPUTATION [None]
  - BLOOD CREATININE INCREASED [None]
  - C-REACTIVE PROTEIN INCREASED [None]
  - CHRONIC MYELOID LEUKAEMIA [None]
  - MULTI-ORGAN FAILURE [None]
  - NECROTISING FASCIITIS [None]
  - SEPSIS [None]
  - STREPTOCOCCAL SEPSIS [None]
  - SYNCOPE [None]
